FAERS Safety Report 14855911 (Version 2)
Quarter: 2018Q2

REPORT INFORMATION
  Report Type: Report from Study
  Country: CO (occurrence: CO)
  Receive Date: 20180507
  Receipt Date: 20180521
  Transmission Date: 20180711
  Serious: Yes (Hospitalization)
  Sender: FDA-Public Use
  Company Number: PHHY2018CO076461

PATIENT
  Sex: Male
  Weight: 76 kg

DRUGS (1)
  1. ENTRESTO [Suspect]
     Active Substance: SACUBITRIL\VALSARTAN
     Indication: CARDIAC FAILURE
     Dosage: 50 MG, Q12H
     Route: 048
     Dates: start: 20170424

REACTIONS (3)
  - Arrhythmia [Recovering/Resolving]
  - Cardiac arrest [Recovering/Resolving]
  - Inguinal hernia [Recovering/Resolving]
